FAERS Safety Report 23657645 (Version 2)
Quarter: 2024Q2

REPORT INFORMATION
  Report Type: Report from Study
  Country: IN (occurrence: IN)
  Receive Date: 20240321
  Receipt Date: 20240404
  Transmission Date: 20240716
  Serious: Yes (Other)
  Sender: FDA-Public Use
  Company Number: IN-002147023-NVSC2024IN058899

PATIENT
  Sex: Female

DRUGS (4)
  1. ALPELISIB [Suspect]
     Active Substance: ALPELISIB
     Indication: Product used for unknown indication
     Dosage: 200 MG
     Route: 065
  2. ALPELISIB [Suspect]
     Active Substance: ALPELISIB
     Dosage: 300 MG
     Route: 065
  3. ALPELISIB [Suspect]
     Active Substance: ALPELISIB
     Dosage: 150 MG, BID
     Route: 048
  4. RIBOCICLIB [Suspect]
     Active Substance: RIBOCICLIB
     Indication: Breast cancer metastatic
     Dosage: 600 MG, QD
     Route: 048
     Dates: start: 20201224, end: 20231212

REACTIONS (3)
  - Diabetes mellitus [Recovering/Resolving]
  - Drug ineffective [Recovering/Resolving]
  - Vomiting [Recovering/Resolving]
